FAERS Safety Report 26166691 (Version 1)
Quarter: 2025Q4

REPORT INFORMATION
  Report Type: Spontaneous
  Country: EU (occurrence: EU)
  Receive Date: 20251217
  Receipt Date: 20251217
  Transmission Date: 20260118
  Serious: Yes (Other)
  Sender: MERCK KGAA
  Company Number: EU-Merck Healthcare KGaA-2025063546

PATIENT
  Sex: Female
  Weight: 20 kg

DRUGS (1)
  1. SAIZEN [Suspect]
     Active Substance: SOMATROPIN
     Indication: Turner^s syndrome
     Dosage: 1.5MG 6 DAYS A WEEK
     Dates: start: 202201

REACTIONS (4)
  - Epilepsy [Unknown]
  - Injection site pain [Unknown]
  - Off label use [Unknown]
  - Device malfunction [Unknown]
